FAERS Safety Report 7275615-6 (Version None)
Quarter: 2011Q1

REPORT INFORMATION
  Report Type: 
  Country: None (occurrence: None)
  Receive Date: 20110204
  Receipt Date: 20110124
  Transmission Date: 20110831
  Serious: Yes (Life-Threatening, Other)
  Sender: FDA-Public Use
  Company Number: BE-NOVOPROD-321906

PATIENT
  Age: 50 Year
  Sex: Male

DRUGS (3)
  1. INSULATARD [Suspect]
     Indication: TYPE 2 DIABETES MELLITUS
     Dosage: UNK
     Route: 058
  2. GLIMEPIRIDE [Concomitant]
     Dosage: 6 MG, QD
     Route: 065
  3. ROSIGLITAZONE [Concomitant]
     Dosage: 4 MG, QD
     Route: 065

REACTIONS (5)
  - DRUG HYPERSENSITIVITY [None]
  - VERTIGO [None]
  - ANAPHYLACTIC SHOCK [None]
  - HOT FLUSH [None]
  - PRURITUS GENERALISED [None]
